FAERS Safety Report 6052259-5 (Version None)
Quarter: 2009Q1

REPORT INFORMATION
  Report Type: 
  Country: None (occurrence: None)
  Receive Date: 20090126
  Receipt Date: 20090116
  Transmission Date: 20090719
  Serious: Yes (Hospitalization, Other)
  Sender: FDA-Public Use
  Company Number: US-AMGEN-QUU328874

PATIENT
  Sex: Male

DRUGS (15)
  1. EPOGEN [Suspect]
     Indication: RENAL FAILURE CHRONIC
     Route: 065
     Dates: start: 20080111
  2. LACTULOSE [Concomitant]
  3. DARVOCET-N 100 [Concomitant]
  4. PEPCID [Concomitant]
  5. ASPIRIN [Concomitant]
  6. PLAVIX [Concomitant]
  7. METOPROLOL TARTRATE [Concomitant]
  8. AMIODARONE HCL [Concomitant]
  9. NORVASC [Concomitant]
  10. CLONIDINE HCL [Concomitant]
  11. XANAX [Concomitant]
  12. FLOMAX [Concomitant]
  13. SPIRIVA [Concomitant]
     Route: 055
  14. ALBUTEROL [Concomitant]
     Route: 055
  15. COMBIVENT [Concomitant]

REACTIONS (1)
  - HAEMOGLOBIN DECREASED [None]
